FAERS Safety Report 6039244-4 (Version None)
Quarter: 2009Q1

REPORT INFORMATION
  Report Type: 
  Country: None (occurrence: None)
  Receive Date: 20090115
  Receipt Date: 20090106
  Transmission Date: 20090719
  Serious: Yes (Other)
  Sender: FDA-Public Use
  Company Number: PHHY2008BR31512

PATIENT
  Sex: Female
  Weight: 71 kg

DRUGS (5)
  1. GALVUS MET COMBIPACK [Suspect]
     Indication: TYPE 2 DIABETES MELLITUS
     Dosage: 850/50 (1TAB VILDAGLIPTIN+1 TAB METFORMIN AM AND PM)
     Dates: start: 20081101
  2. INSULIN [Concomitant]
     Dosage: 4 UI, TWICE
  3. GLIMEPIRIDE [Concomitant]
     Indication: TYPE 2 DIABETES MELLITUS
     Dosage: 2 MG
  4. SIMVASTATIN [Concomitant]
     Indication: BLOOD CHOLESTEROL INCREASED
     Dosage: 10 MG, TWO TABLETS DAILY AT NIGHT
  5. SIBUS [Concomitant]
     Indication: ANXIETY
     Dosage: 10 MG, ONE TABLET DAILY AT DINER

REACTIONS (11)
  - AGITATION [None]
  - BLOOD GLUCOSE FLUCTUATION [None]
  - BODY TEMPERATURE FLUCTUATION [None]
  - DIABETES MELLITUS INADEQUATE CONTROL [None]
  - DRUG INEFFECTIVE [None]
  - HYPERGLYCAEMIA [None]
  - HYPERHIDROSIS [None]
  - MOOD ALTERED [None]
  - NERVOUSNESS [None]
  - PALLOR [None]
  - TENSION [None]
